FAERS Safety Report 13067638 (Version 2)
Quarter: 2017Q1

REPORT INFORMATION
  Report Type: Spontaneous
  Country: US (occurrence: US)
  Receive Date: 20161228
  Receipt Date: 20170302
  Transmission Date: 20170428
  Serious: Yes (Other)
  Sender: FDA-Public Use
  Company Number: US-009507513-1612USA003249

PATIENT
  Age: 64 Year
  Sex: Male
  Weight: 107.94 kg

DRUGS (1)
  1. SINGULAIR [Suspect]
     Active Substance: MONTELUKAST SODIUM
     Indication: COUGH
     Dosage: 10 MG, QD
     Route: 048
     Dates: start: 20160328, end: 20160506

REACTIONS (4)
  - Major depression [Recovered/Resolved]
  - Abnormal behaviour [Unknown]
  - Nausea [Unknown]
  - Drug hypersensitivity [Unknown]

NARRATIVE: CASE EVENT DATE: 20160506
